FAERS Safety Report 4472951-3 (Version None)
Quarter: 2004Q4

REPORT INFORMATION
  Report Type: 
  Country: None (occurrence: None)
  Receive Date: 20041013
  Receipt Date: 20041002
  Transmission Date: 20050328
  Serious: Yes (Hospitalization)
  Sender: FDA-Public Use
  Company Number: DE-ABBOTT-04P-062-0276203-00

PATIENT
  Sex: Male
  Weight: 54 kg

DRUGS (2)
  1. KLACID PRO [Suspect]
     Indication: SUICIDE ATTEMPT
  2. ASPIRIN [Suspect]
     Indication: SUICIDE ATTEMPT
     Route: 048

REACTIONS (2)
  - OVERDOSE [None]
  - SUICIDE ATTEMPT [None]
